FAERS Safety Report 11857243 (Version 1)
Quarter: 2015Q4

REPORT INFORMATION
  Report Type: Spontaneous
  Country: US (occurrence: US)
  Receive Date: 20151221
  Receipt Date: 20151221
  Transmission Date: 20160305
  Serious: No
  Sender: FDA-Public Use
  Company Number: US-PFIZER INC-2015444835

PATIENT
  Age: 48 Year
  Sex: Male
  Weight: 103.42 kg

DRUGS (1)
  1. VIAGRA [Suspect]
     Active Substance: SILDENAFIL CITRATE
     Indication: ERECTILE DYSFUNCTION
     Dosage: 5 MG, 2X/DAY
     Route: 048
     Dates: start: 201511

REACTIONS (1)
  - Semen volume increased [Recovering/Resolving]

NARRATIVE: CASE EVENT DATE: 201511
